FAERS Safety Report 6150108-8 (Version None)
Quarter: 2009Q2

REPORT INFORMATION
  Report Type: 
  Country: None (occurrence: None)
  Receive Date: 20090409
  Receipt Date: 20090330
  Transmission Date: 20091009
  Serious: Yes (Hospitalization, Other)
  Sender: FDA-Public Use
  Company Number: PHHY2009NZ12174

PATIENT
  Sex: Male

DRUGS (8)
  1. CLOZARIL [Suspect]
     Indication: SCHIZOPHRENIA
     Dosage: UNK
     Dates: start: 20090209
  2. CLOZARIL [Suspect]
     Dosage: UNK
     Dates: start: 20090101
  3. OLANZAPINE [Suspect]
  4. CLONAZEPAM [Concomitant]
  5. ZOPICLONE [Concomitant]
  6. ZUCLOPENTHIXOL [Concomitant]
  7. INTERFERON [Concomitant]
  8. LORAZEPAM [Concomitant]

REACTIONS (9)
  - COUGH [None]
  - DIZZINESS [None]
  - DRUG LEVEL INCREASED [None]
  - MALAISE [None]
  - MENTAL DISORDER [None]
  - NEUTROPHIL COUNT INCREASED [None]
  - OROPHARYNGEAL PAIN [None]
  - SOMNOLENCE [None]
  - WHITE BLOOD CELL COUNT INCREASED [None]
